FAERS Safety Report 7564024-8 (Version None)
Quarter: 2011Q2

REPORT INFORMATION
  Report Type: 
  Country: None (occurrence: None)
  Receive Date: 20110622
  Receipt Date: 20110616
  Transmission Date: 20111010
  Serious: Yes (Hospitalization)
  Sender: FDA-Public Use
  Company Number: JP-SANOFI-AVENTIS-2011SA022258

PATIENT
  Age: 83 Year
  Sex: Female
  Weight: 55 kg

DRUGS (9)
  1. AMARYL [Concomitant]
     Indication: DIABETES MELLITUS
     Route: 048
     Dates: start: 20100128
  2. LANSOPRAZOLE [Concomitant]
     Route: 048
     Dates: start: 20100128
  3. TRICOR [Concomitant]
     Route: 048
     Dates: start: 20100128
  4. AMLODIPINE [Concomitant]
     Route: 048
     Dates: start: 20100128
  5. TRICHLORMETHIAZIDE [Concomitant]
     Route: 048
     Dates: start: 20100128
  6. APIDRA [Suspect]
     Dosage: 14 UNITS (6-4-4)/DAY
     Route: 058
     Dates: start: 20101206
  7. CANDESARTAN CILEXETIL/HYDROCHLOROTHIAZIDE [Concomitant]
     Route: 048
     Dates: start: 20100128
  8. APIDRA [Suspect]
     Indication: DIABETES MELLITUS
     Dosage: 12 UNITS (6-2-4)/DAY
     Route: 058
     Dates: start: 20101006, end: 20101205
  9. CARVEDILOL [Concomitant]
     Route: 048
     Dates: start: 20100128

REACTIONS (1)
  - NO ADVERSE EVENT [None]
